FAERS Safety Report 5036263-1 (Version None)
Quarter: 2006Q2

REPORT INFORMATION
  Report Type: 
  Country: None (occurrence: None)
  Receive Date: 20060531
  Receipt Date: 20060421
  Transmission Date: 20061013
  Serious: No
  Sender: FDA-Public Use
  Company Number: PHEH2006US05293

PATIENT
  Sex: Male

DRUGS (2)
  1. EXJADE [Suspect]
  2. APPLE JUICE [Suspect]

REACTIONS (8)
  - ARTHRALGIA [None]
  - DIARRHOEA [None]
  - HEADACHE [None]
  - MYALGIA [None]
  - PRURITUS [None]
  - SERUM FERRITIN ABNORMAL [None]
  - SWELLING FACE [None]
  - VISION BLURRED [None]
